FAERS Safety Report 5778391-9 (Version None)
Quarter: 2008Q2

REPORT INFORMATION
  Report Type: 
  Country: None (occurrence: None)
  Receive Date: 20080617
  Receipt Date: 20080606
  Transmission Date: 20081010
  Serious: Yes (Hospitalization)
  Sender: FDA-Public Use
  Company Number: 2008BI009896

PATIENT
  Age: 48 Year
  Sex: Female
  Weight: 108.8633 kg

DRUGS (8)
  1. AVONEX [Suspect]
     Indication: MULTIPLE SCLEROSIS
     Dosage: 30 UG;QW;IM
     Route: 030
     Dates: start: 20070701
  2. LISINOPRIL [Concomitant]
  3. TOPAMAX [Concomitant]
  4. LEXAPRO [Concomitant]
  5. BACTOSIN [Concomitant]
  6. CELEBREX [Concomitant]
  7. ALBUTEROL [Concomitant]
  8. STEROIDS [Concomitant]

REACTIONS (4)
  - ASTHMA [None]
  - CARDIOMYOPATHY [None]
  - HYPERTENSION [None]
  - PERICARDIAL EFFUSION [None]
